FAERS Safety Report 9150116 (Version 1)
Quarter: 2013Q1

REPORT INFORMATION
  Report Type: Spontaneous
  Country: US (occurrence: None)
  Receive Date: 20130131
  Receipt Date: 20130131
  Transmission Date: 20140127
  Serious: Yes (Hospitalization)
  Sender: FDA-Public Use
  Company Number: VAL_01358_2013

PATIENT
  Age: 80 Year
  Sex: Male
  Weight: 104.5 kg

DRUGS (13)
  1. BENAZEPRIL [Suspect]
     Indication: PRODUCT USED FOR UNKNOWN INDICATION
     Dates: start: 20120224, end: 201209
  2. CARVEDILOL [Suspect]
     Indication: SUPPLEMENTATION THERAPY
  3. IBUPROFEN [Concomitant]
  4. CELCOXIB [Concomitant]
  5. NAPROXEN [Concomitant]
  6. POTASSIUM [Concomitant]
  7. ROPINROLE [Concomitant]
  8. ACETYLSALICYLIC ACID [Concomitant]
  9. FUROSEMIDE [Concomitant]
  10. MAG-OX [Concomitant]
  11. METOLAZONE [Concomitant]
  12. NEXUM [Concomitant]
  13. ALLOPURINOL [Concomitant]

REACTIONS (12)
  - Hypotension [None]
  - Bradycardia [None]
  - Urinary tract infection [None]
  - Chest pain [None]
  - Glomerular filtration rate decreased [None]
  - Platelet count decreased [None]
  - Blood alkaline phosphatase increased [None]
  - Blood creatinine increased [None]
  - Blood bilirubin increased [None]
  - Blood glucose increased [None]
  - Blood urea increased [None]
  - Cardiac failure congestive [None]
